FAERS Safety Report 6819765-4 (Version None)
Quarter: 2010Q3

REPORT INFORMATION
  Report Type: 
  Country: None (occurrence: None)
  Receive Date: 20100707
  Receipt Date: 20100622
  Transmission Date: 20110219
  Serious: Yes (Other)
  Sender: FDA-Public Use
  Company Number: US-JNJFOC-20100701158

PATIENT
  Sex: Male

DRUGS (5)
  1. CHILDREN'S MOTRIN [Suspect]
     Indication: PAIN
     Route: 048
  2. CHILDREN'S MOTRIN [Suspect]
     Indication: EAR INFECTION
     Route: 048
  3. TYLENOL [Suspect]
  4. TYLENOL [Suspect]
     Indication: PAIN
  5. ANTIBIOTIC [Concomitant]
     Indication: EAR INFECTION

REACTIONS (2)
  - PRODUCT QUALITY ISSUE [None]
  - TIC [None]
